FAERS Safety Report 6198632-6 (Version None)
Quarter: 2009Q2

REPORT INFORMATION
  Report Type: 
  Country: None (occurrence: None)
  Receive Date: 20090521
  Receipt Date: 20090513
  Transmission Date: 20091009
  Serious: Yes (Other)
  Sender: FDA-Public Use
  Company Number: GB-ELI_LILLY_AND_COMPANY-GB200905002673

PATIENT
  Age: 59 Year
  Sex: Male
  Weight: 85.8 kg

DRUGS (6)
  1. OLANZAPINE [Suspect]
     Indication: MENTAL DISORDER
     Dosage: 10 MG, DAILY (1/D)
     Route: 048
  2. CARBAMAZEPINE [Concomitant]
     Indication: MENTAL DISORDER
     Dosage: 300 MG, 2/D
     Route: 048
  3. CISPLATIN [Concomitant]
     Indication: GASTRIC CANCER
     Dosage: 120 MG, OTHER
     Route: 042
     Dates: start: 20090218
  4. EPIRUBICIN [Concomitant]
     Indication: GASTRIC CANCER
     Dosage: 100 MG, OTHER
     Route: 042
     Dates: start: 20090218
  5. PERPHENAZINE [Concomitant]
     Indication: MENTAL DISORDER
     Dosage: 4 MG, 2/D
     Route: 048
  6. XELODA [Concomitant]
     Indication: GASTRIC CANCER
     Dosage: 1300 MG, 2/D
     Route: 048
     Dates: start: 20090218, end: 20090311

REACTIONS (3)
  - DRUG INTERACTION [None]
  - GENERAL PHYSICAL CONDITION ABNORMAL [None]
  - HALLUCINATION, VISUAL [None]
